FAERS Safety Report 9818142 (Version 1)
Quarter: 2013Q4

REPORT INFORMATION
  Report Type: Spontaneous
  Country: US (occurrence: None)
  Receive Date: 20131223
  Receipt Date: 20131223
  Transmission Date: 20140711
  Serious: No
  Sender: FDA-Public Use
  Company Number: 219973

PATIENT
  Sex: Male

DRUGS (1)
  1. PICATO [Suspect]
     Indication: ACTINIC KERATOSIS
     Route: 061
     Dates: start: 20121204, end: 20121206

REACTIONS (7)
  - Oedema mouth [None]
  - Mouth ulceration [None]
  - Oropharyngeal pain [None]
  - Application site erythema [None]
  - Application site dryness [None]
  - Application site exfoliation [None]
  - Drug administration error [None]
